FAERS Safety Report 6788786-2 (Version None)
Quarter: 2010Q2

REPORT INFORMATION
  Report Type: 
  Country: None (occurrence: None)
  Receive Date: 20100621
  Receipt Date: 20100610
  Transmission Date: 20101027
  Serious: Yes (Hospitalization)
  Sender: FDA-Public Use
  Company Number: 2010US001598

PATIENT
  Age: 82 Year
  Sex: Male

DRUGS (6)
  1. VESICARE [Suspect]
     Indication: HYPERTONIC BLADDER
     Dosage: 5 MG, /D, ORAL
     Route: 048
     Dates: start: 20090403
  2. LEVOTHYROXINE SODIUM [Concomitant]
  3. GABAOENTIN (GABAPENTIN) [Concomitant]
  4. REQUIP [Concomitant]
  5. NAMENDA [Concomitant]
  6. PROTONIX [Concomitant]

REACTIONS (2)
  - CERVICOBRACHIAL SYNDROME [None]
  - DRY MOUTH [None]
